FAERS Safety Report 15404065 (Version 1)
Quarter: 2018Q3

REPORT INFORMATION
  Report Type: Spontaneous
  Country: US (occurrence: US)
  Receive Date: 20180919
  Receipt Date: 20180919
  Transmission Date: 20181010
  Serious: No
  Sender: FDA-Public Use
  Company Number: US-AVADEL SPECIALTY PHARMACEUTICALS, LLC-2018AVA00225

PATIENT
  Age: 85 Year
  Sex: Male
  Weight: 86.17 kg

DRUGS (3)
  1. UNSPECIFIED ANTIBIOTICS [Concomitant]
     Active Substance: UNSPECIFIED INGREDIENT
  2. ALEVE [Concomitant]
     Active Substance: NAPROXEN SODIUM
  3. NOCTIVA [Suspect]
     Active Substance: DESMOPRESSIN ACETATE
     Indication: NOCTURIA
     Dosage: 0.83 ?G IN EITHER THE LEFT OR RIGHT NOSTRIL, 1X/DAY APPROXIMATELY 30 MINUTES PRIOR TO BEDTIME
     Route: 045
     Dates: start: 20180509, end: 2018

REACTIONS (2)
  - Product preparation error [Recovered/Resolved]
  - Drug ineffective [Recovered/Resolved]

NARRATIVE: CASE EVENT DATE: 20180509
